FAERS Safety Report 20006043 (Version 4)
Quarter: 2021Q4

REPORT INFORMATION
  Report Type: Report from Study
  Country: NL (occurrence: NL)
  Receive Date: 20211027
  Receipt Date: 20211103
  Transmission Date: 20220303
  Serious: Yes (Hospitalization, Other)
  Sender: FDA-Public Use
  Company Number: NL-ABBVIE-16P-114-1607545-00

PATIENT
  Age: 76 Year
  Sex: Male
  Weight: 59 kg

DRUGS (14)
  1. CARBIDOPA\LEVODOPA [Suspect]
     Active Substance: CARBIDOPA\LEVODOPA
     Indication: Parkinson^s disease
     Dosage: MORNING 5.0, CONTINUOUS 1.7, EXTRA 1.5
     Route: 050
     Dates: start: 20140102
  2. CARBIDOPA\LEVODOPA [Suspect]
     Active Substance: CARBIDOPA\LEVODOPA
     Dosage: CONTINUOUS DOSE IS INCREASED WITH 0.2ML
     Route: 050
  3. CARBIDOPA\LEVODOPA [Suspect]
     Active Substance: CARBIDOPA\LEVODOPA
     Dosage: REDUCED THE CONTINUOUS DOSE TO 2.2ML
     Route: 050
  4. CARBIDOPA\LEVODOPA [Suspect]
     Active Substance: CARBIDOPA\LEVODOPA
     Dosage: MD 5.0 ML; CD 2.2 ML; ED 1.8 ML
     Route: 050
  5. CARBIDOPA\LEVODOPA [Suspect]
     Active Substance: CARBIDOPA\LEVODOPA
     Dosage: MORNING DOSE 5.0 ML, CONTINUOUS DOSE 1.9 ML/HR, EXTRA DOSE 1.8 ML?DECREASED DOSE
     Route: 050
  6. CARBIDOPA\LEVODOPA [Suspect]
     Active Substance: CARBIDOPA\LEVODOPA
     Dosage: MORNING DOSE 5.0 ML; CONTINUOUS DOSE 1.7 ML/HR; EXTRA DOSE 1.8ML?DECREASED DOSE
     Route: 050
  7. CARBIDOPA\LEVODOPA [Suspect]
     Active Substance: CARBIDOPA\LEVODOPA
     Dosage: MD 5.0, CD 1.9, ED 1.9
     Route: 050
  8. CARBIDOPA\LEVODOPA [Suspect]
     Active Substance: CARBIDOPA\LEVODOPA
     Dosage: MD 5.0, CD 1.8, ED 1.9
     Route: 050
  9. CARBIDOPA\LEVODOPA [Suspect]
     Active Substance: CARBIDOPA\LEVODOPA
     Dosage: MD 5.0 ML, CD 1.7 M/H, ED 1.9ML
     Route: 050
  10. CARBIDOPA\LEVODOPA [Suspect]
     Active Substance: CARBIDOPA\LEVODOPA
     Dosage: MD 5.0 ML; CD 1.8 ML/H; ED 1.9 ML
     Route: 050
  11. CARBIDOPA\LEVODOPA [Suspect]
     Active Substance: CARBIDOPA\LEVODOPA
     Dosage: MD: 5.0 ML, CD: 1.9 ML/H, ED: 1.9 ML
     Route: 050
  12. SINEMET [Concomitant]
     Active Substance: CARBIDOPA\LEVODOPA
     Indication: Product used for unknown indication
     Dosage: SINEMET RETARD
  13. OXYBUTYNIN CHLORIDE [Concomitant]
     Active Substance: OXYBUTYNIN CHLORIDE
     Indication: Product used for unknown indication
  14. PSYLLIUM [Concomitant]
     Active Substance: PLANTAGO SEED
     Indication: Abnormal faeces
     Dosage: PSYLLIUM FIBERS

REACTIONS (51)
  - Urinary tract infection [Not Recovered/Not Resolved]
  - Hypophagia [Not Recovered/Not Resolved]
  - Malaise [Not Recovered/Not Resolved]
  - Hospitalisation [Recovered/Resolved]
  - Posture abnormal [Not Recovered/Not Resolved]
  - Device kink [Unknown]
  - Food intolerance [Unknown]
  - Memory impairment [Not Recovered/Not Resolved]
  - Nocturia [Not Recovered/Not Resolved]
  - Tension [Not Recovered/Not Resolved]
  - Thought withdrawal [Not Recovered/Not Resolved]
  - Impaired reasoning [Not Recovered/Not Resolved]
  - Faeces hard [Recovered/Resolved]
  - Weight increased [Recovered/Resolved]
  - Speech disorder [Not Recovered/Not Resolved]
  - General physical health deterioration [Not Recovered/Not Resolved]
  - Mobility decreased [Not Recovered/Not Resolved]
  - Fibroma [Recovered/Resolved]
  - Urinary tract infection [Recovered/Resolved]
  - Hypersomnia [Unknown]
  - Hallucinations, mixed [Not Recovered/Not Resolved]
  - Gait disturbance [Recovered/Resolved]
  - Arthralgia [Not Recovered/Not Resolved]
  - Musculoskeletal stiffness [Not Recovered/Not Resolved]
  - Bradyphrenia [Recovering/Resolving]
  - Cognitive disorder [Not Recovered/Not Resolved]
  - Product administration error [Recovered/Resolved]
  - Memory impairment [Not Recovered/Not Resolved]
  - Fear [Not Recovered/Not Resolved]
  - Fatigue [Not Recovered/Not Resolved]
  - Weight decreased [Recovered/Resolved]
  - Weight decreased [Not Recovered/Not Resolved]
  - Asthenia [Unknown]
  - Weight increased [Recovered/Resolved]
  - Fatigue [Not Recovered/Not Resolved]
  - Asthenia [Not Recovered/Not Resolved]
  - Therapeutic product effect variable [Not Recovered/Not Resolved]
  - Constipation [Recovering/Resolving]
  - On and off phenomenon [Not Recovered/Not Resolved]
  - Dyskinesia [Recovered/Resolved]
  - Muscle rigidity [Not Recovered/Not Resolved]
  - Hyperkinesia [Recovered/Resolved]
  - Bradykinesia [Recovering/Resolving]
  - Dyskinesia [Recovering/Resolving]
  - Hyperkinesia [Unknown]
  - Device use issue [Not Recovered/Not Resolved]
  - Hallucination [Unknown]
  - Unevaluable event [Not Recovered/Not Resolved]
  - Bowel movement irregularity [Not Recovered/Not Resolved]
  - Loss of personal independence in daily activities [Not Recovered/Not Resolved]
  - Device dislocation [Unknown]

NARRATIVE: CASE EVENT DATE: 20190901
